FAERS Safety Report 17850869 (Version 2)
Quarter: 2020Q2

REPORT INFORMATION
  Report Type: Report from Study
  Country: US (occurrence: US)
  Receive Date: 20200602
  Receipt Date: 20200611
  Transmission Date: 20200714
  Serious: Yes (Hospitalization)
  Sender: FDA-Public Use
  Company Number: US-EISAI MEDICAL RESEARCH-EC-2020-072887

PATIENT
  Age: 60 Year
  Sex: Male
  Weight: 61.2 kg

DRUGS (3)
  1. LENVIMA [Suspect]
     Active Substance: LENVATINIB
     Route: 048
     Dates: start: 202003, end: 202005
  2. LENVIMA [Suspect]
     Active Substance: LENVATINIB
     Indication: RENAL CANCER
     Route: 048
     Dates: start: 202003, end: 202003
  3. EVEROLIMUS. [Suspect]
     Active Substance: EVEROLIMUS
     Indication: RENAL CANCER
     Dates: end: 202005

REACTIONS (8)
  - Gastrointestinal disorder [Recovered/Resolved]
  - Stomatitis [Recovered/Resolved]
  - Mucous stools [Recovered/Resolved]
  - Vomiting [Recovered/Resolved]
  - Hypertension [Unknown]
  - Weight decreased [Recovered/Resolved]
  - Colitis [Not Recovered/Not Resolved]
  - Cardiac failure [Unknown]

NARRATIVE: CASE EVENT DATE: 202003
